FAERS Safety Report 8098093-6 (Version None)
Quarter: 2012Q1

REPORT INFORMATION
  Report Type: 
  Country: None (occurrence: None)
  Receive Date: 20120128
  Receipt Date: 20110809
  Transmission Date: 20120608
  Serious: No
  Sender: FDA-Public Use
  Company Number: US-ABBOTT-11P-163-0844988-00

PATIENT
  Sex: Female
  Weight: 54.48 kg

DRUGS (4)
  1. HUMIRA [Suspect]
     Dates: start: 20110801
  2. HUMIRA [Suspect]
     Indication: CROHN'S DISEASE
     Dosage: LOADING DOSE
     Dates: start: 20110701, end: 20110701
  3. HUMIRA [Suspect]
     Dates: start: 20110801, end: 20110801
  4. PREDNISONE [Concomitant]
     Dates: start: 20110701

REACTIONS (2)
  - NAUSEA [None]
  - VOMITING [None]
